FAERS Safety Report 6245855-3 (Version None)
Quarter: 2009Q2

REPORT INFORMATION
  Report Type: 
  Country: None (occurrence: None)
  Receive Date: 20090626
  Receipt Date: 20090612
  Transmission Date: 20091009
  Serious: Yes (Hospitalization, Other)
  Sender: FDA-Public Use
  Company Number: FR-PFIZER INC-2009213141

PATIENT
  Age: 35 Year

DRUGS (8)
  1. CYTOTEC [Suspect]
     Indication: ABORTION INDUCED
     Dosage: 2 DF, 1X/DAY
     Route: 048
     Dates: start: 20090405
  2. CYTOTEC [Suspect]
     Indication: ENDOCERVICAL CURETTAGE
  3. MIFEGYNE [Concomitant]
  4. LAMALINE [Concomitant]
  5. IBUPROFENE [Concomitant]
     Indication: PELVIC PAIN
     Dosage: 400 MG, 5X/DAY
     Dates: start: 20090405
  6. IBUPROFENE [Concomitant]
     Dosage: 2 DF, 3X/DAY
  7. NORDETTE-21 [Concomitant]
  8. AUGMENTIN [Concomitant]

REACTIONS (3)
  - ABORTION INCOMPLETE [None]
  - CERVIX DISORDER [None]
  - OFF LABEL USE [None]
